FAERS Safety Report 5324023-3 (Version None)
Quarter: 2007Q2

REPORT INFORMATION
  Report Type: 
  Country: None (occurrence: None)
  Receive Date: 20070514
  Receipt Date: 20070503
  Transmission Date: 20071010
  Serious: Yes (Other)
  Sender: FDA-Public Use
  Company Number: DE-ELI_LILLY_AND_COMPANY-DE200705001838

PATIENT
  Age: 65 Year
  Sex: Female
  Weight: 71 kg

DRUGS (3)
  1. TERIPARATIDE [Suspect]
     Indication: OSTEOPOROSIS
     Dosage: UNK, DAILY (1/D)
     Route: 058
     Dates: start: 20060712
  2. L-THYROXIN [Concomitant]
  3. DOCITON [Concomitant]

REACTIONS (1)
  - COLON CANCER [None]
